FAERS Safety Report 8098860-9 (Version None)
Quarter: 2012Q1

REPORT INFORMATION
  Report Type: 
  Country: None (occurrence: None)
  Receive Date: 20120129
  Receipt Date: 20110922
  Transmission Date: 20120608
  Serious: No
  Sender: FDA-Public Use
  Company Number: US-ABBOTT-11P-163-0857651-00

PATIENT
  Sex: Male
  Weight: 137.11 kg

DRUGS (11)
  1. SIMVASTATIN [Concomitant]
     Indication: BLOOD CHOLESTEROL INCREASED
  2. CELEBREX [Concomitant]
     Indication: PSORIATIC ARTHROPATHY
  3. LOSARTAN POTASSIUM [Concomitant]
     Indication: HYPERTENSION
  4. HUMIRA [Suspect]
     Indication: PSORIATIC ARTHROPATHY
     Dates: start: 20110101, end: 20110201
  5. GABAPENTIN [Concomitant]
     Indication: NEURALGIA
  6. POTASSIUM CHLORIDE [Concomitant]
     Indication: MINERAL SUPPLEMENTATION
  7. METOLAZONE [Concomitant]
     Indication: OEDEMA
  8. AMLODIPINE [Concomitant]
     Indication: HYPERTENSION
  9. FUROSEMIDE [Concomitant]
     Indication: OEDEMA
  10. HUMIRA [Suspect]
     Dates: start: 20110201, end: 20110501
  11. HUMIRA [Suspect]
     Dates: start: 20110501

REACTIONS (6)
  - INJECTION SITE NODULE [None]
  - HYPERSENSITIVITY [None]
  - DIABETES MELLITUS [None]
  - DRUG DOSE OMISSION [None]
  - ARTHRALGIA [None]
  - INJECTION SITE PAIN [None]
